FAERS Safety Report 8778222 (Version 1)
Quarter: 2012Q4

REPORT INFORMATION
  Report Type: 
  Country: GB (occurrence: GB)
  Receive Date: 20120911
  Receipt Date: 20120911
  Transmission Date: 20130627
  Serious: Yes (Other)
  Sender: FDA-Public Use
  Company Number: GB-BAYER-2012-093846

PATIENT
  Sex: Female

DRUGS (1)
  1. CANESTEN 500MG VAGINAL PESSARY [Suspect]
     Dosage: UNK
     Dates: start: 20120906

REACTIONS (1)
  - Vaginal haemorrhage [None]
